FAERS Safety Report 22111961 (Version 5)
Quarter: 2023Q2

REPORT INFORMATION
  Report Type: Report from Study
  Country: US (occurrence: US)
  Receive Date: 20230318
  Receipt Date: 20230618
  Transmission Date: 20230722
  Serious: Yes (Hospitalization, Other)
  Sender: FDA-Public Use
  Company Number: US-AMGEN-USACT2023047764

PATIENT
  Age: 61 Year
  Sex: Female
  Weight: 57.6 kg

DRUGS (10)
  1. SOTORASIB [Suspect]
     Active Substance: SOTORASIB
     Indication: Non-small cell lung cancer
     Dosage: 960 MILLIGRAM, QD
     Route: 048
     Dates: start: 20230203, end: 20230306
  2. SOTORASIB [Suspect]
     Active Substance: SOTORASIB
     Dosage: 960 MILLIGRAM, QD
     Route: 048
     Dates: start: 20230303, end: 20230306
  3. AVUTOMETINIB [Suspect]
     Active Substance: AVUTOMETINIB
     Indication: Non-small cell lung cancer
     Dosage: 4 MILLIGRAM, 2 TIMES/WK/ TUESDAY/FRIDAY
     Route: 048
     Dates: start: 20230203, end: 20230303
  4. AVUTOMETINIB [Suspect]
     Active Substance: AVUTOMETINIB
     Dosage: 4 MILLIGRAM, 2 TIMES/WK/ TUESDAY/FRIDAY
     Route: 048
     Dates: start: 20230217, end: 20230303
  5. AVUTOMETINIB [Suspect]
     Active Substance: AVUTOMETINIB
     Dosage: 3.2 MILLIGRAM, 2 TIMES/WK
     Route: 048
     Dates: start: 20230303, end: 20230303
  6. OXYCODONE [Concomitant]
     Active Substance: OXYCODONE
     Dosage: UNK
     Dates: start: 20230307, end: 20230310
  7. OMEPRAZOLE [Concomitant]
     Active Substance: OMEPRAZOLE
     Dosage: UNK
     Dates: start: 20230307, end: 20230310
  8. PROCHLORPERAZINE [Concomitant]
     Active Substance: PROCHLORPERAZINE
     Dosage: UNK
     Dates: start: 20230303, end: 20230310
  9. ACETAMINOPHEN [Concomitant]
     Active Substance: ACETAMINOPHEN
     Dosage: UNK
     Dates: start: 20230305, end: 20230307
  10. NORCO [Concomitant]
     Active Substance: ACETAMINOPHEN\HYDROCODONE BITARTRATE
     Dosage: UNK
     Dates: start: 20230305, end: 20230307

REACTIONS (4)
  - Muscular weakness [Not Recovered/Not Resolved]
  - Blood bilirubin increased [Recovered/Resolved]
  - Alanine aminotransferase increased [Recovered/Resolved]
  - Aspartate aminotransferase increased [Recovered/Resolved]

NARRATIVE: CASE EVENT DATE: 20230310
